FAERS Safety Report 8275312-4 (Version None)
Quarter: 2012Q2

REPORT INFORMATION
  Report Type: 
  Country: None (occurrence: None)
  Receive Date: 20120411
  Receipt Date: 20120403
  Transmission Date: 20120825
  Serious: Yes (Hospitalization, Other)
  Sender: FDA-Public Use
  Company Number: JP-PFIZER INC-2010081936

PATIENT
  Age: 61 Year
  Sex: Female
  Weight: 52.6 kg

DRUGS (15)
  1. METHOTREXATE SODIUM [Suspect]
     Dosage: 15 MG, WEEKLY
     Route: 048
     Dates: start: 20090309, end: 20091215
  2. METHOTREXATE SODIUM [Suspect]
     Dosage: 10 MG, WEEKLY
     Route: 048
     Dates: start: 20091221, end: 20100628
  3. ALFAROL [Suspect]
     Indication: OSTEOPOROSIS
     Dosage: 0.25 UG, 1X/DAY
     Route: 048
     Dates: start: 20041028
  4. HYALEIN [Suspect]
     Indication: DRY EYE
     Dosage: UNK, 4X/DAY
     Route: 031
     Dates: start: 20090101
  5. OMEPRAZOLE [Suspect]
     Indication: GASTRITIS PROPHYLAXIS
     Dosage: 10 MG, 1X/DAY
     Route: 048
     Dates: start: 20070629
  6. LEVOFLOXACIN [Suspect]
     Indication: CONJUNCTIVITIS ALLERGIC
     Dosage: UNK, 3X/DAY
     Route: 031
     Dates: start: 20090101
  7. FOLIAMIN [Suspect]
     Indication: RHEUMATOID ARTHRITIS
     Dosage: 5 MG, WEEKLY
     Route: 048
     Dates: start: 20090826, end: 20100629
  8. METHOTREXATE SODIUM [Suspect]
     Indication: RHEUMATOID ARTHRITIS
     Dosage: 12.5 MG, WEEKLY
     Route: 048
     Dates: start: 20070730, end: 20090303
  9. FLUOROMETHOLONE [Suspect]
     Indication: CONJUNCTIVITIS ALLERGIC
     Dosage: UNK, 3X/DAY
     Route: 031
     Dates: start: 20090101
  10. METHYCOBAL [Suspect]
     Indication: MENIERE'S DISEASE
     Dosage: UNK, AS NEEDED
     Route: 048
     Dates: start: 20080101
  11. CEPHADOL [Suspect]
     Indication: MENIERE'S DISEASE
     Dosage: UNK, AS NEEDED
     Route: 048
     Dates: start: 20080101
  12. NORVASC [Suspect]
     Dosage: 5 MG, 1X/DAY
     Route: 048
     Dates: start: 20091024
  13. MICARDIS [Suspect]
     Indication: HYPERTENSION
     Dosage: 40 MG, 1X/DAY
     Route: 048
     Dates: start: 20080620, end: 20100906
  14. ADENOSINE [Suspect]
     Indication: MENIERE'S DISEASE
     Dosage: UNK, AS NEEDED
     Route: 048
     Dates: start: 20080101
  15. PLACEBO [Suspect]
     Indication: RHEUMATOID ARTHRITIS
     Dosage: 0 MG, 2X/DAY
     Route: 048
     Dates: start: 20100215, end: 20100630

REACTIONS (1)
  - BASAL CELL CARCINOMA [None]
